FAERS Safety Report 6214053-1 (Version None)
Quarter: 2009Q2

REPORT INFORMATION
  Report Type: 
  Country: None (occurrence: None)
  Receive Date: 20090604
  Receipt Date: 20090528
  Transmission Date: 20091009
  Serious: Yes (Other)
  Sender: FDA-Public Use
  Company Number: US-JNJFOC-20090600335

PATIENT
  Sex: Female
  Weight: 61.24 kg

DRUGS (6)
  1. TOPAMAX [Suspect]
     Dosage: 50 MG IN AM AND 50 MG IN PM
     Route: 048
  2. TOPAMAX [Suspect]
     Dosage: 50 MG IN AM AND 100 MG IN PM
     Route: 048
  3. TOPAMAX [Suspect]
     Indication: MIGRAINE PROPHYLAXIS
     Route: 048
  4. BUSPAR [Concomitant]
  5. ZOLOFT [Concomitant]
  6. SEASONALE [Concomitant]
     Indication: CONTRACEPTION

REACTIONS (3)
  - ALOPECIA [None]
  - CONNECTIVE TISSUE DISORDER [None]
  - TREATMENT NONCOMPLIANCE [None]
